FAERS Safety Report 9168319 (Version 1)
Quarter: 2013Q1

REPORT INFORMATION
  Report Type: Spontaneous
  Country: GB (occurrence: None)
  Receive Date: 20130305
  Receipt Date: 20130305
  Transmission Date: 20140127
  Serious: Yes (Other)
  Sender: FDA-Public Use
  Company Number: GB-DEXPHARM-20130063

PATIENT
  Age: 43 Year
  Sex: Female

DRUGS (14)
  1. OMEPRAZOLE [Suspect]
     Dates: start: 20130205
  2. DOMPERIDONE [Concomitant]
  3. FERROUS FUMARATE [Concomitant]
  4. FERROUS GLUCONATE [Concomitant]
  5. FUROSEMIDE [Concomitant]
  6. HYOSCINE BUTYLBROMIDE [Concomitant]
  7. LAXIDO [Concomitant]
  8. MICRALAX [Concomitant]
  9. NUTRITIONAL SUPPLEMENT [Concomitant]
  10. ORAMORPH [Concomitant]
  11. PICOLAX [Concomitant]
  12. POTASSIUM CHLORIDE [Concomitant]
  13. RANITIDINE [Concomitant]
  14. SENNA [Concomitant]

REACTIONS (1)
  - Rash [None]
